FAERS Safety Report 5601715-X (Version None)
Quarter: 2008Q1

REPORT INFORMATION
  Report Type: 
  Country: None (occurrence: None)
  Receive Date: 20080124
  Receipt Date: 20071217
  Transmission Date: 20080703
  Serious: Yes (Hospitalization)
  Sender: FDA-Public Use
  Company Number: IE-AMGEN-UK257587

PATIENT
  Sex: Male

DRUGS (4)
  1. NEULASTA [Suspect]
     Indication: CHEMOTHERAPY
     Route: 058
     Dates: start: 20071003
  2. FLUOROURACIL [Suspect]
     Route: 065
  3. LEUCOVORIN CALCIUM [Concomitant]
     Route: 065
  4. OXALIPLATIN [Concomitant]
     Route: 065

REACTIONS (5)
  - ASTHENIA [None]
  - DIARRHOEA [None]
  - MALAISE [None]
  - NAUSEA [None]
  - VOMITING [None]
